FAERS Safety Report 10071229 (Version 1)
Quarter: 2014Q2

REPORT INFORMATION
  Report Type: Spontaneous
  Country: GB (occurrence: GB)
  Receive Date: 20140410
  Receipt Date: 20140410
  Transmission Date: 20141212
  Serious: Yes (Other)
  Sender: FDA-Public Use
  Company Number: PHHY2014GB043250

PATIENT
  Age: 77 Year
  Sex: Female

DRUGS (2)
  1. DICLOFENAC [Suspect]
     Indication: OSTEOARTHRITIS
  2. OMEPRAZOLE [Suspect]
     Indication: OSTEOARTHRITIS

REACTIONS (3)
  - Lichen planus [Recovering/Resolving]
  - Skin ulcer [Recovering/Resolving]
  - Mucous membrane disorder [Recovering/Resolving]
